FAERS Safety Report 12431773 (Version 4)
Quarter: 2016Q3

REPORT INFORMATION
  Report Type: Report from Study
  Country: JP (occurrence: JP)
  Receive Date: 20160603
  Receipt Date: 20160803
  Transmission Date: 20161109
  Serious: Yes (Hospitalization, Other)
  Sender: FDA-Public Use
  Company Number: JP-AMGEN-JPNCT2016023846

PATIENT
  Age: 67 Year
  Sex: Female
  Weight: 55 kg

DRUGS (24)
  1. 5-FU [Suspect]
     Active Substance: FLUOROURACIL
     Indication: RECTAL CANCER STAGE IV
     Dosage: 550 MG, Q2WK
     Route: 040
     Dates: start: 20151016, end: 20151016
  2. 5-FU [Suspect]
     Active Substance: FLUOROURACIL
     Dosage: 3350 MG, Q2WEEKS
     Route: 041
     Dates: start: 20160209, end: 20160510
  3. CALCIUM LEVOFOLINATE [Concomitant]
     Active Substance: LEVOLEUCOVORIN CALCIUM
     Indication: RECTAL CANCER STAGE IV
     Dosage: 275 MG, Q2WEEKS
     Route: 041
     Dates: start: 20151109, end: 20160112
  4. ELPLAT [Suspect]
     Active Substance: OXALIPLATIN
     Indication: RECTAL CANCER STAGE IV
     Dosage: 110 MG, Q2WEEKS
     Route: 041
     Dates: start: 20151016, end: 20151016
  5. CALCIUM LEVOFOLINATE [Concomitant]
     Active Substance: LEVOLEUCOVORIN CALCIUM
     Indication: COLON CANCER
     Dosage: 275 MG, Q2WEEKS
     Route: 041
     Dates: start: 20151016, end: 20151016
  6. CALCIUM LEVOFOLINATE [Concomitant]
     Active Substance: LEVOLEUCOVORIN CALCIUM
     Indication: METASTASES TO LYMPH NODES
  7. ALOXI [Concomitant]
     Active Substance: PALONOSETRON HYDROCHLORIDE
     Indication: PROPHYLAXIS
     Dosage: 0.75 MG, Q2WEEKS
     Route: 042
     Dates: start: 20151016, end: 20160510
  8. 5-FU [Suspect]
     Active Substance: FLUOROURACIL
     Indication: METASTASES TO LYMPH NODES
     Dosage: 3350 MG, Q2WEEKS
     Route: 041
     Dates: start: 20151109, end: 20160112
  9. ELPLAT [Suspect]
     Active Substance: OXALIPLATIN
     Indication: METASTASES TO LUNG
     Dosage: 110 MG, Q2WEEKS
     Route: 041
     Dates: start: 20151109, end: 20160112
  10. LOXOPROFEN [Concomitant]
     Active Substance: LOXOPROFEN
     Dosage: 60 MG, TID
     Route: 048
     Dates: start: 20151011, end: 20160521
  11. PANITUMUMAB [Suspect]
     Active Substance: PANITUMUMAB
     Indication: RECTAL CANCER STAGE IV
     Dosage: 270 MG, Q2WK
     Route: 041
     Dates: start: 20151016, end: 20151016
  12. 5-FU [Suspect]
     Active Substance: FLUOROURACIL
     Dosage: 550 MG, Q2WEEKS
     Route: 040
     Dates: start: 20160209, end: 20160510
  13. MAGNESIUM OXIDE. [Concomitant]
     Active Substance: MAGNESIUM OXIDE
     Dosage: 0.6 G, TID
     Route: 048
     Dates: start: 20160419
  14. PANITUMUMAB [Suspect]
     Active Substance: PANITUMUMAB
     Indication: METASTASES TO LYMPH NODES
     Dosage: UNK
     Route: 041
  15. 5-FU [Suspect]
     Active Substance: FLUOROURACIL
     Indication: METASTASES TO LUNG
     Dosage: 3550 MG/M2, Q2WK
     Route: 041
     Dates: start: 20151016, end: 20151016
  16. ELPLAT [Suspect]
     Active Substance: OXALIPLATIN
     Indication: METASTASES TO OVARY
     Dosage: UNK
     Route: 065
  17. CALCIUM LEVOFOLINATE [Concomitant]
     Active Substance: LEVOLEUCOVORIN CALCIUM
     Indication: METASTASES TO LUNG
     Dosage: 275 MG, Q2WEEKS
     Route: 041
     Dates: start: 20160209, end: 20160510
  18. ELPLAT [Suspect]
     Active Substance: OXALIPLATIN
     Indication: METASTASES TO LYMPH NODES
     Dosage: UNK
     Route: 065
  19. MUCOSTA [Concomitant]
     Active Substance: REBAMIPIDE
     Indication: GASTRITIS PROPHYLAXIS
     Dosage: 100 MG, TID
     Route: 048
     Dates: start: 20151011, end: 20160521
  20. MINOCYCLINE HYDROCHLORIDE. [Concomitant]
     Active Substance: MINOCYCLINE HYDROCHLORIDE
     Indication: PROPHYLAXIS
     Dosage: 50 MG, BID
     Route: 048
     Dates: start: 20151018, end: 20160521
  21. PROMAC [Concomitant]
     Active Substance: NITROFURANTOIN
     Indication: DYSGEUSIA
     Dosage: 75 MG, BID
     Route: 048
     Dates: start: 20151228, end: 20160521
  22. 5-FU [Suspect]
     Active Substance: FLUOROURACIL
     Indication: METASTASES TO OVARY
     Dosage: 550 MG, Q2WEEKS
     Route: 040
     Dates: start: 20151109, end: 20160112
  23. CALCIUM LEVOFOLINATE [Concomitant]
     Active Substance: LEVOLEUCOVORIN CALCIUM
     Indication: METASTASES TO OVARY
     Dosage: UNK
     Route: 065
  24. DAIKENCHUTO [Concomitant]
     Active Substance: HERBALS
     Dosage: 2.5 G, TID
     Route: 048
     Dates: start: 20150910

REACTIONS (13)
  - Platelet count decreased [Recovered/Resolved]
  - Abdominal pain upper [Recovered/Resolved]
  - Palmar-plantar erythrodysaesthesia syndrome [Not Recovered/Not Resolved]
  - Neutrophil count decreased [Recovered/Resolved]
  - Malaise [Recovered/Resolved]
  - Nausea [Recovered/Resolved]
  - Interstitial lung disease [Recovering/Resolving]
  - Hepatic function abnormal [Recovered/Resolved]
  - Hypomagnesaemia [Recovered/Resolved]
  - Neuropathy peripheral [Not Recovered/Not Resolved]
  - Stomatitis [Not Recovered/Not Resolved]
  - Alopecia [Recovered/Resolved]
  - White blood cell count decreased [Recovered/Resolved]

NARRATIVE: CASE EVENT DATE: 20151102
